FAERS Safety Report 7515814-9 (Version None)
Quarter: 2011Q2

REPORT INFORMATION
  Report Type: 
  Country: None (occurrence: None)
  Receive Date: 20110601
  Receipt Date: 20110518
  Transmission Date: 20111010
  Serious: Yes (Other)
  Sender: FDA-Public Use
  Company Number: CH-CELGENEUS-151-21880-11033557

PATIENT

DRUGS (3)
  1. MARCUMAR [Concomitant]
     Indication: ANTICOAGULANT THERAPY
     Route: 065
     Dates: start: 19970101
  2. REVLIMID [Suspect]
     Indication: MULTIPLE MYELOMA
     Route: 048
     Dates: start: 20090701, end: 20110101
  3. DEXAMETHASONE [Concomitant]
     Indication: MULTIPLE MYELOMA
     Route: 065
     Dates: start: 20090701, end: 20110101

REACTIONS (6)
  - ERYTHEMA NODOSUM [None]
  - JOINT SWELLING [None]
  - HAEMATOLOGY TEST ABNORMAL [None]
  - TUMOUR INVASION [None]
  - PERIPHERAL SENSORY NEUROPATHY [None]
  - H1N1 INFLUENZA [None]
